FAERS Safety Report 6635723-7 (Version None)
Quarter: 2010Q1

REPORT INFORMATION
  Report Type: 
  Country: None (occurrence: None)
  Receive Date: 20100311
  Receipt Date: 20100311
  Transmission Date: 20100710
  Serious: Yes (Other)
  Sender: FDA-Public Use
  Company Number: None

PATIENT
  Age: 21 Year
  Sex: Male
  Weight: 40.8237 kg

DRUGS (1)
  1. SEROQUEL [Suspect]
     Indication: EXPOSURE TO NOISE
     Dosage: 25MG BID PO
     Route: 048
     Dates: start: 20100129, end: 20100308

REACTIONS (1)
  - DIABETES MELLITUS [None]
